FAERS Safety Report 16850511 (Version 1)
Quarter: 2019Q3

REPORT INFORMATION
  Report Type: Spontaneous
  Country: US (occurrence: US)
  Receive Date: 20190925
  Receipt Date: 20190925
  Transmission Date: 20191005
  Serious: No
  Sender: FDA-Public Use
  Company Number: US-UPSHER-SMITH LABORATORIES, LLC-2018USL00431

PATIENT
  Age: 62 Year
  Sex: Male
  Weight: 113.38 kg

DRUGS (10)
  1. METFORMIN [Concomitant]
     Active Substance: METFORMIN HYDROCHLORIDE
  2. BACLOFEN. [Suspect]
     Active Substance: BACLOFEN
     Indication: NEURALGIA
  3. LOSARTAN. [Concomitant]
     Active Substance: LOSARTAN
  4. UNSPECIFIED NARCOTIC [Concomitant]
     Active Substance: UNSPECIFIED INGREDIENT
  5. BACLOFEN. [Suspect]
     Active Substance: BACLOFEN
     Indication: ARTHRITIS
  6. GABAPENTIN. [Concomitant]
     Active Substance: GABAPENTIN
  7. ADVIL [Concomitant]
     Active Substance: IBUPROFEN
  8. BACLOFEN. [Suspect]
     Active Substance: BACLOFEN
     Indication: MYALGIA
     Dosage: 10 MG, 2X/DAY
     Route: 048
     Dates: start: 20180808, end: 20180831
  9. BACLOFEN. [Suspect]
     Active Substance: BACLOFEN
     Indication: INTERVERTEBRAL DISC DEGENERATION
  10. HYDROCHLOROTHIAZIDE. [Concomitant]
     Active Substance: HYDROCHLOROTHIAZIDE

REACTIONS (1)
  - Therapeutic product effect decreased [Recovered/Resolved]

NARRATIVE: CASE EVENT DATE: 20180808
